FAERS Safety Report 10160103 (Version 2)
Quarter: 2014Q2

REPORT INFORMATION
  Report Type: Spontaneous
  Country: FR (occurrence: FR)
  Receive Date: 20140508
  Receipt Date: 20140530
  Transmission Date: 20141212
  Serious: Yes (Hospitalization)
  Sender: FDA-Public Use
  Company Number: US-ASTRAZENECA-2014SE30901

PATIENT
  Age: 82 Year
  Sex: Female

DRUGS (8)
  1. KENZEN [Suspect]
     Indication: PRODUCT USED FOR UNKNOWN INDICATION
     Route: 048
     Dates: end: 20140205
  2. LYRICA [Suspect]
     Route: 048
     Dates: start: 201312, end: 20140205
  3. EFFEXOR [Concomitant]
     Route: 048
  4. INEXIUM [Concomitant]
     Route: 048
  5. STILNOX [Concomitant]
     Route: 048
  6. LEVOTHYROX [Concomitant]
     Indication: HYPOTHYROIDISM
     Route: 048
  7. TRINITRINE [Concomitant]
     Indication: MYOCARDIAL ISCHAEMIA
  8. TRINITRINE [Concomitant]
     Indication: HYPERTENSION

REACTIONS (4)
  - Eosinophilia [Recovered/Resolved]
  - Hepatitis cholestatic [Recovered/Resolved]
  - Hyperbilirubinaemia [Recovered/Resolved]
  - Hepatitis [Recovered/Resolved]
